FAERS Safety Report 11274132 (Version 1)
Quarter: 2015Q3

REPORT INFORMATION
  Report Type: Spontaneous
  Country: BR (occurrence: BR)
  Receive Date: 20150715
  Receipt Date: 20150715
  Transmission Date: 20151125
  Serious: Yes (Life-Threatening)
  Sender: FDA-Public Use
  Company Number: BR-GE HEALTHCARE MEDICAL DIAGNOSTICS-OMPQ-PR-1507S-1080

PATIENT
  Age: 49 Year
  Sex: Female
  Weight: 33.14 kg

DRUGS (5)
  1. OMNIPAQUE [Suspect]
     Active Substance: IOHEXOL
     Indication: INTRACRANIAL ANEURYSM
     Route: 042
     Dates: start: 20150703, end: 20150703
  2. OMNIPAQUE [Suspect]
     Active Substance: IOHEXOL
     Indication: DIAGNOSTIC PROCEDURE
  3. SERTRALINE [Concomitant]
     Active Substance: SERTRALINE HYDROCHLORIDE
  4. CAPTOPRIL. [Concomitant]
     Active Substance: CAPTOPRIL
  5. HALOPERIDOL. [Concomitant]
     Active Substance: HALOPERIDOL

REACTIONS (6)
  - Laryngeal oedema [Recovering/Resolving]
  - Tachypnoea [Recovering/Resolving]
  - Speech disorder [Recovering/Resolving]
  - Eyelid oedema [Recovering/Resolving]
  - Oedema genital [Recovering/Resolving]
  - Dyspnoea [Recovering/Resolving]

NARRATIVE: CASE EVENT DATE: 20150703
